FAERS Safety Report 7515971-4 (Version None)
Quarter: 2011Q2

REPORT INFORMATION
  Report Type: 
  Country: None (occurrence: None)
  Receive Date: 20110601
  Receipt Date: 20110526
  Transmission Date: 20111010
  Serious: Yes (Hospitalization)
  Sender: FDA-Public Use
  Company Number: CH-SANOFI-AVENTIS-2011SA033732

PATIENT
  Age: 72 Year
  Sex: Male

DRUGS (7)
  1. ASPIRIN [Suspect]
     Route: 048
     Dates: start: 20100901, end: 20110301
  2. ATORVASTATIN [Concomitant]
     Route: 048
  3. ASPIRIN [Suspect]
     Route: 048
     Dates: start: 20100901, end: 20110301
  4. VOLTAREN [Suspect]
     Route: 048
     Dates: end: 20110308
  5. METOPROLOL SUCCINATE [Concomitant]
     Route: 048
  6. PLAVIX [Suspect]
     Route: 048
     Dates: start: 20100901, end: 20110301
  7. PLAVIX [Suspect]
     Route: 048
     Dates: start: 20100901, end: 20110301

REACTIONS (9)
  - MELAENA [None]
  - ASTHENIA [None]
  - RECTAL HAEMORRHAGE [None]
  - ANAEMIA [None]
  - GASTRITIS [None]
  - ABDOMINAL PAIN UPPER [None]
  - EROSIVE DUODENITIS [None]
  - SYNCOPE [None]
  - GASTROINTESTINAL HAEMORRHAGE [None]
